FAERS Safety Report 9253669 (Version 3)
Quarter: 2013Q2

REPORT INFORMATION
  Report Type: Report from Study
  Country: RO (occurrence: RO)
  Receive Date: 20130425
  Receipt Date: 20130430
  Transmission Date: 20140414
  Serious: Yes (Hospitalization, Other)
  Sender: FDA-Public Use
  Company Number: RO-ROCHE-1218313

PATIENT
  Age: 68 Year
  Sex: Female
  Weight: 61 kg

DRUGS (2)
  1. RITUXIMAB [Suspect]
     Indication: RHEUMATOID ARTHRITIS
     Route: 042
     Dates: start: 20110404, end: 20121219
  2. METHOTREXAT [Concomitant]
     Indication: RHEUMATOID ARTHRITIS
     Route: 048

REACTIONS (1)
  - Lung neoplasm malignant [Recovering/Resolving]
